FAERS Safety Report 21234259 (Version 1)
Quarter: 2022Q3

REPORT INFORMATION
  Report Type: Spontaneous
  Country: IQ (occurrence: IQ)
  Receive Date: 20220819
  Receipt Date: 20220819
  Transmission Date: 20221027
  Serious: Yes (Death, Other)
  Sender: FDA-Public Use
  Company Number: IQ-009507513-2208IRQ006811

PATIENT
  Age: 2 Year
  Sex: Male

DRUGS (4)
  1. KEYTRUDA [Suspect]
     Active Substance: PEMBROLIZUMAB
     Indication: Metastatic malignant melanoma
     Dosage: 2 MILLIGRAM/KILOGRAM, Q3W FOR 2 CYCLES
  2. INTERFERON ALFA-2B [Suspect]
     Active Substance: INTERFERON ALFA-2B
     Indication: Metastatic malignant melanoma
  3. CISPLATIN [Suspect]
     Active Substance: CISPLATIN
     Indication: Metastatic malignant melanoma
  4. ETOPOSIDE [Suspect]
     Active Substance: ETOPOSIDE
     Indication: Metastatic malignant melanoma

REACTIONS (3)
  - Death [Fatal]
  - Product availability issue [Unknown]
  - Product dose omission issue [Unknown]
